FAERS Safety Report 17345060 (Version 1)
Quarter: 2020Q1

REPORT INFORMATION
  Report Type: Spontaneous
  Country: US (occurrence: US)
  Receive Date: 20200129
  Receipt Date: 20200129
  Transmission Date: 20200409
  Serious: No
  Sender: FDA-Public Use
  Company Number: US-ALLERGAN-1951559US

PATIENT
  Sex: Female

DRUGS (1)
  1. BOTOX COSMETIC [Suspect]
     Active Substance: ONABOTULINUMTOXINA
     Indication: SKIN WRINKLING
     Dosage: 2.5 UNITS, SINGLE
     Route: 065
     Dates: start: 20191210, end: 20191210

REACTIONS (2)
  - Hypoaesthesia [Unknown]
  - Swelling face [Unknown]

NARRATIVE: CASE EVENT DATE: 20191212
